FAERS Safety Report 6153737-0 (Version None)
Quarter: 2009Q2

REPORT INFORMATION
  Report Type: 
  Country: None (occurrence: None)
  Receive Date: 20090410
  Receipt Date: 20090401
  Transmission Date: 20091009
  Serious: Yes (Death)
  Sender: FDA-Public Use
  Company Number: 2009-194279-NL

PATIENT
  Age: 42 Year
  Sex: Female
  Weight: 61.7 kg

DRUGS (4)
  1. NUVARING [Suspect]
     Indication: CONTRACEPTION
     Dosage: VAGINAL
     Route: 067
     Dates: start: 20080901, end: 20090222
  2. NASONEX [Concomitant]
  3. VENTOLIN [Concomitant]
  4. FLOVENT [Concomitant]

REACTIONS (2)
  - LIMB INJURY [None]
  - PULMONARY EMBOLISM [None]
